FAERS Safety Report 5107817-9 (Version None)
Quarter: 2006Q3

REPORT INFORMATION
  Report Type: 
  Country: None (occurrence: None)
  Receive Date: 20060919
  Receipt Date: 20050831
  Transmission Date: 20061208
  Serious: Yes (Hospitalization, Other)
  Sender: FDA-Public Use
  Company Number: PHHO2005JP13915

PATIENT
  Age: 53 Year
  Sex: Male
  Weight: 59 kg

DRUGS (7)
  1. DIOVAN [Suspect]
     Indication: HYPERTENSION
     Dosage: 80 MG, QD
     Route: 048
     Dates: start: 20030305
  2. NORVASC [Concomitant]
     Indication: HYPERTENSION
     Route: 048
     Dates: start: 20030209, end: 20041228
  3. TENORMIN [Concomitant]
     Indication: HYPERTENSION
     Dates: start: 20030514
  4. CALSLOT [Concomitant]
     Indication: HYPERTENSION
     Dosage: 20 MG, QD
     Route: 048
     Dates: start: 20041229
  5. SELECTOL [Concomitant]
     Indication: HYPERTENSION
     Dosage: 200 MG, QD
     Route: 048
     Dates: start: 20041102, end: 20041228
  6. PENFILL R [Concomitant]
     Indication: DIABETES MELLITUS
     Dates: start: 20040217, end: 20040228
  7. NOVOLIN [Concomitant]
     Indication: DIABETES MELLITUS
     Dates: start: 20041102

REACTIONS (3)
  - BILE DUCT CANCER [None]
  - DIABETES MELLITUS INSULIN-DEPENDENT [None]
  - SURGERY [None]
